FAERS Safety Report 4658803-4 (Version None)
Quarter: 2005Q2

REPORT INFORMATION
  Report Type: 
  Country: None (occurrence: None)
  Receive Date: 20050511
  Receipt Date: 20050113
  Transmission Date: 20051028
  Serious: Yes (Other)
  Sender: FDA-Public Use
  Company Number: JP-ROCHE-394365

PATIENT
  Age: 73 Year
  Sex: Female

DRUGS (6)
  1. PEGASYS [Suspect]
     Route: 058
     Dates: start: 20040219
  2. ASCOMP [Concomitant]
     Route: 048
     Dates: start: 20030806
  3. URALYT [Concomitant]
     Route: 048
     Dates: start: 20030806
  4. DEPAS [Concomitant]
     Route: 048
  5. OSTEN [Concomitant]
     Route: 048
     Dates: start: 20030806
  6. FELBINAC [Concomitant]
     Route: 061
     Dates: start: 20030806

REACTIONS (10)
  - ALANINE AMINOTRANSFERASE INCREASED [None]
  - ANOREXIA [None]
  - ASPARTATE AMINOTRANSFERASE INCREASED [None]
  - CEREBRAL ISCHAEMIA [None]
  - DECREASED APPETITE [None]
  - DIPLOPIA [None]
  - HEPATITIS CHRONIC ACTIVE [None]
  - IIIRD NERVE PARALYSIS [None]
  - RED BLOOD CELL COUNT DECREASED [None]
  - WHITE BLOOD CELL COUNT DECREASED [None]
